APPROVED DRUG PRODUCT: NEXIUM
Active Ingredient: ESOMEPRAZOLE MAGNESIUM
Strength: EQ 40MG BASE/PACKET
Dosage Form/Route: FOR SUSPENSION, DELAYED RELEASE;ORAL
Application: N021957 | Product #002 | TE Code: AB
Applicant: ASTRAZENECA PHARMACEUTICALS LP
Approved: Oct 20, 2006 | RLD: Yes | RS: Yes | Type: RX